FAERS Safety Report 18618045 (Version 2)
Quarter: 2021Q1

REPORT INFORMATION
  Report Type: Spontaneous
  Country: US (occurrence: US)
  Receive Date: 20201215
  Receipt Date: 20210210
  Transmission Date: 20210419
  Serious: No
  Sender: FDA-Public Use
  Company Number: US-PFIZER INC-2020413939

PATIENT
  Age: 4 Year
  Sex: Female

DRUGS (5)
  1. GENOTROPIN [Suspect]
     Active Substance: SOMATROPIN
     Indication: SHORT STATURE
     Dosage: 0.4 MG
     Dates: start: 202010
  2. BENADRYL [Concomitant]
     Active Substance: DIPHENHYDRAMINE HYDROCHLORIDE
     Indication: NONSPECIFIC REACTION
     Dosage: UNK
  3. GENOTROPIN [Suspect]
     Active Substance: SOMATROPIN
     Dosage: 0.4 MG, DAILY
     Dates: start: 20201016
  4. GENOTROPIN [Suspect]
     Active Substance: SOMATROPIN
     Dosage: 0.2 MG (SHE GAVE 0.2 MG TOO MUCH OF THE MEDICATION)
     Dates: start: 20201028
  5. PULMICORT TURBUHALER [Concomitant]
     Active Substance: BUDESONIDE
     Dosage: UNK (IT^S A LIQUID, IN A CAPSULE THAT YOU GIVE IN A NEBULIZER BUT SHE TAKES IT ORALLY)
     Route: 048

REACTIONS (6)
  - Exposure via skin contact [Unknown]
  - Accidental exposure to product by child [Unknown]
  - Influenza [Unknown]
  - Pyrexia [Unknown]
  - Wrong dose [Unknown]
  - Speech disorder [Unknown]

NARRATIVE: CASE EVENT DATE: 20201028
